FAERS Safety Report 4386131-3 (Version None)
Quarter: 2004Q2

REPORT INFORMATION
  Report Type: 
  Country: None (occurrence: None)
  Receive Date: 20040622
  Receipt Date: 20040615
  Transmission Date: 20050107
  Serious: Yes (Hospitalization)
  Sender: FDA-Public Use
  Company Number: 2004039600

PATIENT
  Age: 84 Year
  Sex: Male

DRUGS (5)
  1. LIPITOR [Suspect]
     Indication: HYPERCHOLESTEROLAEMIA
     Dosage: 5 MG (1 IN 1 D), ORAL
     Route: 048
     Dates: start: 20001219, end: 20040511
  2. METOPROLOL TARTRATE [Concomitant]
  3. TEPRENONE (TEPRENONE) [Concomitant]
  4. NIZATIDINE [Concomitant]
  5. ETIZOLAM (ETIZOLAM) [Concomitant]

REACTIONS (4)
  - DEHYDRATION [None]
  - DIABETES MELLITUS [None]
  - METABOLIC ACIDOSIS [None]
  - PANCREATIC ATROPHY [None]
